FAERS Safety Report 5242383-9 (Version None)
Quarter: 2007Q1

REPORT INFORMATION
  Report Type: 
  Country: None (occurrence: None)
  Receive Date: 20070216
  Receipt Date: 20070216
  Transmission Date: 20070707
  Serious: Yes (Life-Threatening, Hospitalization, Other)
  Sender: FDA-Public Use
  Company Number: None

PATIENT
  Age: 35 Day
  Sex: Male
  Weight: 74.8435 kg

DRUGS (1)
  1. ZITHROMAX [Suspect]
     Indication: BRONCHITIS
     Dosage: 5 DAY PACK 5 DAYS PO
     Route: 048
     Dates: start: 20070118, end: 20070122

REACTIONS (1)
  - AUTOIMMUNE HEPATITIS [None]
